FAERS Safety Report 18217134 (Version 1)
Quarter: 2020Q3

REPORT INFORMATION
  Report Type: Spontaneous
  Country: US (occurrence: US)
  Receive Date: 20200901
  Receipt Date: 20200901
  Transmission Date: 20201103
  Serious: No
  Sender: FDA-Public Use
  Company Number: US-GLAXOSMITHKLINE-US2020173706

PATIENT
  Sex: Female

DRUGS (1)
  1. VOLTAREN [Suspect]
     Active Substance: DICLOFENAC SODIUM
     Indication: MYALGIA
     Dosage: UNK
     Dates: start: 20200825

REACTIONS (5)
  - Condition aggravated [Unknown]
  - Product use issue [Unknown]
  - Myalgia [Unknown]
  - Off label use [Unknown]
  - Product use in unapproved indication [Unknown]
